FAERS Safety Report 18820204 (Version 1)
Quarter: 2021Q1

REPORT INFORMATION
  Report Type: Spontaneous
  Country: US (occurrence: US)
  Receive Date: 20210201
  Receipt Date: 20210201
  Transmission Date: 20210419
  Serious: Yes (Other)
  Sender: FDA-Public Use
  Company Number: None

PATIENT
  Age: 39 Year
  Sex: Female

DRUGS (50)
  1. CEFTRIAXONE. [Concomitant]
     Active Substance: CEFTRIAXONE
  2. PEPCID [Concomitant]
     Active Substance: FAMOTIDINE
  3. LACTATED RINGERS SOLUTION [Concomitant]
     Active Substance: CALCIUM CHLORIDE\POTASSIUM CHLORIDE\SODIUM CHLORIDE\SODIUM LACTATE
  4. LOPERAMIDE CAP [Concomitant]
  5. MGSO4 [Concomitant]
     Active Substance: MAGNESIUM SULFATE
  6. NACL [Concomitant]
     Active Substance: SODIUM CHLORIDE
  7. ACETAMINOPHEN. [Concomitant]
     Active Substance: ACETAMINOPHEN
  8. VENELEX OINT TOP [Concomitant]
  9. BANATROL PLUS [Concomitant]
  10. DEXTROSE. [Concomitant]
     Active Substance: DEXTROSE
  11. FLUCONAZOLE. [Concomitant]
     Active Substance: FLUCONAZOLE
  12. MIDODRINE [Concomitant]
     Active Substance: MIDODRINE
  13. NOREPINEPHRINE. [Concomitant]
     Active Substance: NOREPINEPHRINE
  14. DEFINITY [Concomitant]
     Active Substance: PERFLUTREN
  15. KCI IV [Concomitant]
  16. NACI [Concomitant]
     Active Substance: SODIUM CHLORIDE
  17. SANTYL OINT TOP [Concomitant]
  18. DEXMEDETOMIDINE. [Concomitant]
     Active Substance: DEXMEDETOMIDINE
  19. GASTROGRAFIN [Concomitant]
     Active Substance: DIATRIZOATE MEGLUMINE\DIATRIZOATE SODIUM
  20. DILAUDID [Concomitant]
     Active Substance: HYDROMORPHONE HYDROCHLORIDE
  21. LACOSAMIDE. [Concomitant]
     Active Substance: LACOSAMIDE
  22. LORAZEPAM. [Concomitant]
     Active Substance: LORAZEPAM
  23. SODIUM PHOSPHATE [Concomitant]
     Active Substance: SODIUM PHOSPHATE
  24. VASOPRESSIN. [Concomitant]
     Active Substance: VASOPRESSIN
  25. PHYTONADIONE. [Concomitant]
     Active Substance: PHYTONADIONE
  26. REFRESH CLASSIC OPHTH [Concomitant]
  27. PRISMASATE BGK CRRT [Concomitant]
  28. NITROGLYCERIN. [Concomitant]
     Active Substance: NITROGLYCERIN
  29. ACYCLOVIR. [Concomitant]
     Active Substance: ACYCLOVIR
  30. CEFEPIME [Concomitant]
     Active Substance: CEFEPIME HYDROCHLORIDE
  31. FLAGYL [Concomitant]
     Active Substance: METRONIDAZOLE\METRONIDAZOLE HYDROCHLORIDE
  32. ZOFRAN [Concomitant]
     Active Substance: ONDANSETRON HYDROCHLORIDE
  33. SENOKOT [Concomitant]
     Active Substance: SENNOSIDES
  34. SODIUM BICARBONATE. [Concomitant]
     Active Substance: SODIUM BICARBONATE
  35. BENADRYL [Concomitant]
     Active Substance: DIPHENHYDRAMINE HYDROCHLORIDE
  36. FENTANYL. [Concomitant]
     Active Substance: FENTANYL
  37. GABAPENTIN. [Concomitant]
     Active Substance: GABAPENTIN
  38. MIRALAX [Concomitant]
     Active Substance: POLYETHYLENE GLYCOL 3350
  39. EFFER?K TAB [Concomitant]
  40. PROPOFOL. [Concomitant]
     Active Substance: PROPOFOL
  41. SODIUM CITRATE. [Concomitant]
     Active Substance: SODIUM CITRATE
  42. TBO?FILGRASTIM [Concomitant]
     Active Substance: TBO-FILGRASTIM
  43. VANCOMYCIN [Concomitant]
     Active Substance: VANCOMYCIN
  44. CHLORHEXIDINE GLUCONATE ORAL RINSE, 0.12% [Suspect]
     Active Substance: CHLORHEXIDINE GLUCONATE
     Indication: ANTIBIOTIC PROPHYLAXIS
     Dosage: ?          OTHER ROUTE:SWISH AND SPIT?
     Route: 048
     Dates: start: 20200929, end: 20201008
  45. LOVENOX [Concomitant]
     Active Substance: ENOXAPARIN SODIUM
  46. PRIVIGEN [Concomitant]
     Active Substance: HUMAN IMMUNOGLOBULIN G
  47. METOCLOPRAMIDE. [Concomitant]
     Active Substance: METOCLOPRAMIDE
  48. VERSED [Concomitant]
     Active Substance: MIDAZOLAM HYDROCHLORIDE
  49. OXYCODONE [Concomitant]
     Active Substance: OXYCODONE
  50. CALCIUM GLUCONATE. [Concomitant]
     Active Substance: CALCIUM GLUCONATE

REACTIONS (12)
  - Burkholderia test positive [None]
  - Klebsiella test positive [None]
  - Suspected transmission of an infectious agent via product [None]
  - Septic shock [None]
  - Peripheral ischaemia [None]
  - Renal impairment [None]
  - Recalled product [None]
  - Bacteraemia [None]
  - Pancytopenia [None]
  - Cardiac failure congestive [None]
  - Dialysis [None]
  - Cerebral haemorrhage [None]

NARRATIVE: CASE EVENT DATE: 20201005
